FAERS Safety Report 4912882-5 (Version None)
Quarter: 2006Q1

REPORT INFORMATION
  Report Type: 
  Country: None (occurrence: None)
  Receive Date: 20060215
  Receipt Date: 20060102
  Transmission Date: 20060701
  Serious: Yes (Death)
  Sender: FDA-Public Use
  Company Number: FR-BRISTOL-MYERS SQUIBB COMPANY-13235114

PATIENT
  Age: 25 Year
  Sex: Female

DRUGS (1)
  1. ABILIFY [Suspect]
     Indication: SCHIZOAFFECTIVE DISORDER
     Dosage: ABILIFY: TABLET (DOSE UNKNOWN) TAKEN FOR DURATION OF 3 TO 4 MONTHS; PT WAS NOT COMPLIANT TO THIS RX.
     Route: 048

REACTIONS (2)
  - COMPLETED SUICIDE [None]
  - TREATMENT NONCOMPLIANCE [None]
